FAERS Safety Report 7366088-3 (Version None)
Quarter: 2011Q1

REPORT INFORMATION
  Report Type: 
  Country: None (occurrence: None)
  Receive Date: 20110322
  Receipt Date: 20110310
  Transmission Date: 20110831
  Serious: Yes (Hospitalization)
  Sender: FDA-Public Use
  Company Number: DE-SANOFI-AVENTIS-2011SA005164

PATIENT
  Age: 72 Year
  Sex: Female
  Weight: 71 kg

DRUGS (13)
  1. MULTAQ [Suspect]
     Indication: ATRIAL FIBRILLATION
     Route: 048
     Dates: start: 20110125, end: 20110125
  2. METOPROLOL [Concomitant]
     Route: 065
  3. RAMIPRIL [Concomitant]
     Route: 065
  4. SIMVASTATIN [Concomitant]
     Route: 065
  5. MARCUMAR [Suspect]
     Route: 065
  6. FUROSEMID [Concomitant]
     Route: 065
  7. BISOPROLOL [Concomitant]
     Route: 065
  8. ALLOPURINOL [Concomitant]
     Route: 065
  9. NOVALGIN [Concomitant]
     Route: 065
  10. CORDAREX [Concomitant]
     Route: 065
     Dates: start: 20101201, end: 20110101
  11. FENISTIL [Concomitant]
     Indication: DRUG ERUPTION
     Route: 065
     Dates: end: 20110122
  12. PANTOZOL [Concomitant]
     Route: 065
  13. CORTISONE [Concomitant]
     Indication: DRUG ERUPTION
     Route: 065
     Dates: end: 20110122

REACTIONS (10)
  - LIPASE INCREASED [None]
  - LIVER DISORDER [None]
  - ASPARTATE AMINOTRANSFERASE INCREASED [None]
  - BLOOD ALKALINE PHOSPHATASE INCREASED [None]
  - GAMMA-GLUTAMYLTRANSFERASE INCREASED [None]
  - HEPATOCELLULAR INJURY [None]
  - ALANINE AMINOTRANSFERASE INCREASED [None]
  - ASTHENIA [None]
  - ABDOMINAL PAIN UPPER [None]
  - NAUSEA [None]
